FAERS Safety Report 14239491 (Version 1)
Quarter: 2017Q4

REPORT INFORMATION
  Report Type: Spontaneous
  Country: US (occurrence: None)
  Receive Date: 20171129
  Receipt Date: 20171129
  Transmission Date: 20180321
  Serious: No
  Sender: FDA-Public Use
  Company Number: None

PATIENT
  Age: 61 Year
  Sex: Male
  Weight: 89 kg

DRUGS (4)
  1. BUPRENORPHINE/NALOXONE [Suspect]
     Active Substance: BUPRENORPHINE\NALOXONE
     Indication: PAIN
     Route: 048
     Dates: start: 20160701
  2. BUPRENORPHINE/NALOXONE [Suspect]
     Active Substance: BUPRENORPHINE\NALOXONE
     Indication: PAIN
     Route: 048
     Dates: start: 20160701
  3. BUPRENORPHINE/NALOXONE [Suspect]
     Active Substance: BUPRENORPHINE\NALOXONE
     Indication: DRUG USE DISORDER
     Route: 048
     Dates: start: 20160701
  4. BUPRENORPHINE/NALOXONE [Suspect]
     Active Substance: BUPRENORPHINE\NALOXONE
     Indication: DRUG USE DISORDER
     Route: 048
     Dates: start: 20160701

REACTIONS (3)
  - Anxiety [None]
  - Agitation [None]
  - Drug dependence [None]

NARRATIVE: CASE EVENT DATE: 20161208
